FAERS Safety Report 9419939 (Version 1)
Quarter: 2013Q3

REPORT INFORMATION
  Report Type: Report from Study
  Country: DE (occurrence: DE)
  Receive Date: 20130725
  Receipt Date: 20130725
  Transmission Date: 20140515
  Serious: Yes (Hospitalization)
  Sender: FDA-Public Use
  Company Number: DE-ABBOTT-13P-062-1058400-00

PATIENT
  Age: 71 Year
  Sex: Male

DRUGS (6)
  1. HUMIRA [Suspect]
     Indication: PSORIASIS
     Route: 058
     Dates: start: 201209, end: 20130225
  2. METHOTREXATE [Concomitant]
     Indication: PSORIASIS
     Dates: start: 20120412
  3. BETAMETHASONE [Concomitant]
     Indication: PSORIASIS
     Route: 061
     Dates: start: 201302
  4. PYRITHIONE ZINC [Concomitant]
     Indication: PSORIASIS
     Route: 061
     Dates: start: 201302
  5. VOLON A TINKTUR N [Concomitant]
     Indication: PSORIASIS
     Route: 061
     Dates: start: 201302
  6. DERMATOP [Concomitant]
     Indication: PSORIASIS
     Route: 061
     Dates: start: 201302

REACTIONS (4)
  - Parapsoriasis [Not Recovered/Not Resolved]
  - Drug ineffective [Not Recovered/Not Resolved]
  - Pruritus [Unknown]
  - Erythema [Unknown]
